FAERS Safety Report 10024996 (Version 1)
Quarter: 2014Q1

REPORT INFORMATION
  Report Type: Spontaneous
  Country: US (occurrence: None)
  Receive Date: 20140318
  Receipt Date: 20140318
  Transmission Date: 20141002
  Serious: Yes (Other)
  Sender: FDA-Public Use
  Company Number: KV201400030

PATIENT
  Age: 25 Year
  Sex: Female

DRUGS (4)
  1. MAKENA (HYDROXYPROGESTERONE CAPROATE 250 MG/ML) INJECTION, 250MG/ML [Suspect]
     Indication: PREMATURE DELIVERY
     Dosage: 250 MG, ONCE WEEKLY, INTRAMUSCULAR
     Route: 030
     Dates: start: 20131125, end: 20140203
  2. MAKENA (HYDROXYPROGESTERONE CAPROATE 250 MG/ML) INJECTION, 250MG/ML [Suspect]
     Indication: OFF LABEL USE
     Dosage: 250 MG, ONCE WEEKLY, INTRAMUSCULAR
     Route: 030
     Dates: start: 20131125, end: 20140203
  3. PRENATAL VITAMINS /01549301/ (ASCORBIC ACID, BIOTIN, MINERALS NOS, NICOTINIC ACID, RETINOL, TOCOPHEROL, VITAMIN B NOS, VITAMIN D NOS)? [Concomitant]
  4. PEN-VEE K (PHENOXYMETHYLPENICILLIN POTASSIUM) [Concomitant]

REACTIONS (5)
  - Premature separation of placenta [None]
  - Foetal hypokinesia [None]
  - Rash [None]
  - Off label use [None]
  - Caesarean section [None]
